FAERS Safety Report 22026204 (Version 2)
Quarter: 2023Q2

REPORT INFORMATION
  Report Type: Spontaneous
  Country: US (occurrence: US)
  Receive Date: 20230223
  Receipt Date: 20230615
  Transmission Date: 20230721
  Serious: No
  Sender: FDA-Public Use
  Company Number: US-BRISTOL-MYERS SQUIBB COMPANY-2023-026446

PATIENT
  Age: 66 Year
  Sex: Male

DRUGS (1)
  1. SPRYCEL [Suspect]
     Active Substance: DASATINIB
     Indication: White blood cell count increased
     Route: 048
     Dates: start: 20220523

REACTIONS (6)
  - Bowel movement irregularity [Unknown]
  - Off label use [Unknown]
  - Feeling hot [Unknown]
  - Headache [Unknown]
  - Cold sweat [Unknown]
  - Extra dose administered [Unknown]
